FAERS Safety Report 7452395-2 (Version None)
Quarter: 2011Q2

REPORT INFORMATION
  Report Type: 
  Country: None (occurrence: None)
  Receive Date: 20110425
  Receipt Date: 20110407
  Transmission Date: 20111010
  Serious: Yes (Other)
  Sender: FDA-Public Use
  Company Number: US-DEXPHARM-20110454

PATIENT
  Sex: Female

DRUGS (4)
  1. OMEPRAZOLE [Suspect]
  2. OMEPRAZOLE [Suspect]
     Indication: GASTROOESOPHAGEAL REFLUX DISEASE
     Dosage: 20 MG ONCE A DAY, ORAL
     Route: 048
     Dates: end: 20110301
  3. OMEPRAZOLE [Suspect]
     Indication: FLATULENCE
     Dosage: 20 MG ONCE A DAY, ORAL
     Route: 048
     Dates: end: 20110301
  4. OMEPRAZOLE [Suspect]
     Indication: ABDOMINAL DISTENSION
     Dosage: 20 MG ONCE A DAY, ORAL
     Route: 048
     Dates: end: 20110301

REACTIONS (2)
  - ARRHYTHMIA [None]
  - MALAISE [None]
